FAERS Safety Report 16733724 (Version 1)
Quarter: 2019Q3

REPORT INFORMATION
  Report Type: Spontaneous
  Country: US (occurrence: US)
  Receive Date: 20190823
  Receipt Date: 20190823
  Transmission Date: 20191005
  Serious: Yes (Other)
  Sender: FDA-Public Use
  Company Number: US-SA-2019SA234778

PATIENT
  Age: 62 Year
  Sex: Male

DRUGS (1)
  1. PRALUENT [Suspect]
     Active Substance: ALIROCUMAB
     Indication: ARTERIOSCLEROSIS
     Dosage: UNK
     Dates: start: 201603

REACTIONS (4)
  - Splenomegaly [Unknown]
  - Pancreatitis [Unknown]
  - Cholecystitis [Unknown]
  - Hepatic enzyme increased [Unknown]
